FAERS Safety Report 15642427 (Version 1)
Quarter: 2018Q4

REPORT INFORMATION
  Report Type: Report from Study
  Country: DE (occurrence: DE)
  Receive Date: 20181121
  Receipt Date: 20181121
  Transmission Date: 20190205
  Serious: Yes (Other)
  Sender: FDA-Public Use
  Company Number: DE-ROCHE-1805394

PATIENT
  Age: 32 Year
  Sex: Female

DRUGS (1)
  1. BEVACIZUMAB. [Suspect]
     Active Substance: BEVACIZUMAB
     Indication: OVARIAN CANCER
     Route: 042
     Dates: start: 20131111

REACTIONS (13)
  - Stoma site extravasation [Recovered/Resolved]
  - Coagulation test abnormal [Recovered/Resolved]
  - Muscle spasms [Recovered/Resolved]
  - Depression [Not Recovered/Not Resolved]
  - Menopausal symptoms [Recovering/Resolving]
  - Stoma site irritation [Recovered/Resolved]
  - Lymphocele [Unknown]
  - Coagulation test abnormal [Recovered/Resolved]
  - Night sweats [Unknown]
  - Renal failure [Recovered/Resolved]
  - Wound [Recovered/Resolved]
  - Nausea [Recovered/Resolved]
  - Abdominal pain upper [Recovered/Resolved]

NARRATIVE: CASE EVENT DATE: 20131111
